FAERS Safety Report 10962561 (Version 1)
Quarter: 2015Q1

REPORT INFORMATION
  Report Type: Spontaneous
  Country: FR (occurrence: FR)
  Receive Date: 20150327
  Receipt Date: 20150327
  Transmission Date: 20150721
  Serious: Yes (Other)
  Sender: FDA-Public Use
  Company Number: FR-BAXTER-2015BAX014947

PATIENT
  Age: 21 Month
  Sex: Male
  Weight: 12 kg

DRUGS (9)
  1. NALBUPHINE MYLAN [Suspect]
     Active Substance: NALBUPHINE
     Indication: PAIN
     Route: 042
     Dates: start: 20150303, end: 20150304
  2. VALIUM [Suspect]
     Active Substance: DIAZEPAM
     Indication: PRODUCT USED FOR UNKNOWN INDICATION
     Route: 048
     Dates: start: 20150302, end: 20150304
  3. VINCRISTINE HOSPIRA [Suspect]
     Active Substance: VINCRISTINE
     Dosage: DAY 1 OF EIGHTHCOURSE
     Route: 042
     Dates: start: 20150303
  4. VINCRISTINE HOSPIRA [Suspect]
     Active Substance: VINCRISTINE
     Indication: RHABDOMYOSARCOMA
     Dosage: 0.57 MILLIGRAM IN 1 COURSE
     Route: 042
     Dates: start: 20140912
  5. IFOSFAMIDE EG [Suspect]
     Active Substance: IFOSFAMIDE
     Indication: SARCOMA
     Route: 042
     Dates: start: 20140912
  6. PLITICAN [Suspect]
     Active Substance: ALIZAPRIDE HYDROCHLORIDE
     Indication: PROPHYLAXIS
     Route: 042
     Dates: start: 20150303, end: 20150304
  7. IFOSFAMIDE EG [Suspect]
     Active Substance: IFOSFAMIDE
     Dosage: ON DAY 1 AND DAY 2 (EIGHTH COURSE)
     Route: 042
     Dates: start: 20150303
  8. ONDANSETRON ACCORD [Suspect]
     Active Substance: ONDANSETRON
     Indication: PROPHYLAXIS
     Route: 042
     Dates: start: 20150303, end: 20150304
  9. UROMITEXAN 5 G/50 ML, SOLUTION INJECTABLE POUR PERFUSION EN FLACON [Suspect]
     Active Substance: MESNA
     Indication: PROPHYLAXIS
     Route: 042
     Dates: start: 20150303, end: 20150304

REACTIONS (4)
  - Encephalopathy [Unknown]
  - Pain [Unknown]
  - Somnolence [Recovered/Resolved]
  - Myoclonus [Recovered/Resolved]

NARRATIVE: CASE EVENT DATE: 20150303
